FAERS Safety Report 10624692 (Version 4)
Quarter: 2018Q2

REPORT INFORMATION
  Report Type: Report from Study
  Country: AU (occurrence: AU)
  Receive Date: 20141204
  Receipt Date: 20180621
  Transmission Date: 20180711
  Serious: Yes (Hospitalization)
  Sender: FDA-Public Use
  Company Number: AU-ROCHE-1499277

PATIENT
  Age: 75 Year
  Sex: Female
  Weight: 42.3 kg

DRUGS (13)
  1. FILGRASTIM [Concomitant]
     Active Substance: FILGRASTIM
     Indication: PROPHYLAXIS
     Route: 065
     Dates: start: 20141104, end: 20141109
  2. NEXIUM [Concomitant]
     Active Substance: ESOMEPRAZOLE MAGNESIUM
     Route: 048
     Dates: start: 20141031
  3. HALOPERIDOL. [Concomitant]
     Active Substance: HALOPERIDOL
     Dosage: 1-0-0
     Route: 048
     Dates: start: 20141027
  4. BEVACIZUMAB. [Suspect]
     Active Substance: BEVACIZUMAB
     Indication: OVARIAN CANCER
     Dosage: LAST DOSE PRIOR TO HYPONATREMIA, URINARY TRACT INFECTION AND CONFUSION: 03/NOV/2014
     Route: 042
     Dates: start: 20140717, end: 20141124
  5. FELODUR [Concomitant]
     Active Substance: FELODIPINE
     Indication: HYPERTENSION
     Route: 048
     Dates: start: 20141027, end: 20141117
  6. HALOPERIDOL. [Concomitant]
     Active Substance: HALOPERIDOL
     Indication: NAUSEA
     Dosage: 0-0-1
     Route: 048
     Dates: start: 20141027
  7. HALOPERIDOL. [Concomitant]
     Active Substance: HALOPERIDOL
     Indication: NAUSEA
     Route: 048
     Dates: start: 20141027
  8. FELODUR [Concomitant]
     Active Substance: FELODIPINE
     Dosage: 0-0-1
     Route: 048
     Dates: start: 20141119
  9. PREDNISOLONE. [Concomitant]
     Active Substance: PREDNISOLONE
     Indication: FATIGUE
     Dosage: 1-0-0
     Route: 048
     Dates: start: 20141027, end: 20141109
  10. GEMCITABINE [Suspect]
     Active Substance: GEMCITABINE\GEMCITABINE HYDROCHLORIDE
     Indication: OVARIAN CANCER
     Dosage: LAST DOSE PRIOR TO HYPONATREMIA, URINARY TRACT INFECTION AND CONFUSION: 03/NOV/2014
     Route: 042
     Dates: start: 20140717
  11. CARBOPLATIN. [Suspect]
     Active Substance: CARBOPLATIN
     Indication: OVARIAN CANCER
     Dosage: LAST DOSE PRIOR TO HYPONATREMIA AND URINARY TRACT INFECTION: 03/NOV/2014?DOSE AUC4
     Route: 065
     Dates: start: 20140717
  12. PREDNISOLONE. [Concomitant]
     Active Substance: PREDNISOLONE
     Route: 048
     Dates: start: 20141118
  13. IRBESARTAN. [Concomitant]
     Active Substance: IRBESARTAN
     Indication: HYPERTENSION
     Dosage: 0-0-1
     Route: 048
     Dates: start: 20141118

REACTIONS (3)
  - Confusional state [Recovered/Resolved]
  - Posterior reversible encephalopathy syndrome [Recovered/Resolved]
  - Hyponatraemia [Recovered/Resolved]

NARRATIVE: CASE EVENT DATE: 20141110
